FAERS Safety Report 11461062 (Version 1)
Quarter: 2015Q3

REPORT INFORMATION
  Report Type: Spontaneous
  Country: US (occurrence: US)
  Receive Date: 20150831
  Receipt Date: 20150831
  Transmission Date: 20151125
  Serious: No
  Sender: FDA-Public Use
  Company Number: US-ELI_LILLY_AND_COMPANY-US201006004034

PATIENT
  Age: 36 Year
  Sex: Female

DRUGS (1)
  1. CYMBALTA [Suspect]
     Active Substance: DULOXETINE HYDROCHLORIDE
     Indication: MAJOR DEPRESSION
     Dosage: 30 MG, UNK
     Dates: end: 20100610

REACTIONS (9)
  - Musculoskeletal stiffness [Unknown]
  - Feeling abnormal [Unknown]
  - Crying [Unknown]
  - Yawning [Unknown]
  - Feeling cold [Unknown]
  - Fatigue [Unknown]
  - Somnolence [Unknown]
  - Chills [Unknown]
  - Constipation [Not Recovered/Not Resolved]

NARRATIVE: CASE EVENT DATE: 20100614
